FAERS Safety Report 10235519 (Version 1)
Quarter: 2014Q2

REPORT INFORMATION
  Report Type: Spontaneous
  Country: PT (occurrence: PT)
  Receive Date: 20140613
  Receipt Date: 20140613
  Transmission Date: 20141212
  Serious: Yes (Other)
  Sender: FDA-Public Use
  Company Number: PT-ACTAVIS-2014-12303

PATIENT
  Age: 67 Year
  Sex: Female
  Weight: 61 kg

DRUGS (2)
  1. GEMCITABINA ACTAVIS [Suspect]
     Indication: PANCREATIC CARCINOMA
     Dosage: 1600 MG, 2/21 DAYS (ON DAY 1 AND 8 OF A 21-DAY CHEMOTHERAPY CYCLE; 180 ML/H INFUSION, 3 MG/ML))
     Route: 040
     Dates: start: 20140424, end: 20140502
  2. FORTECORTIN                        /00016001/ [Concomitant]
     Indication: PROPHYLAXIS
     Dosage: 8 MG, CYCLICAL (ADMINSITERED CONF, CYCLE QT)
     Route: 048
     Dates: start: 20140424

REACTIONS (2)
  - Dizziness [Recovered/Resolved]
  - Feeling drunk [Recovered/Resolved]
